FAERS Safety Report 8387530 (Version 2)
Quarter: 2013Q1

REPORT INFORMATION
  Report Type: Spontaneous
  Country: HR (occurrence: HR)
  Receive Date: 20120202
  Receipt Date: 20130208
  Transmission Date: 20140127
  Serious: Yes (Other)
  Sender: FDA-Public Use
  Company Number: PHHY2012HR007091

PATIENT
  Age: 13 Year
  Sex: Male

DRUGS (1)
  1. AZITHROMYCIN [Suspect]
     Indication: UPPER RESPIRATORY TRACT INFECTION
     Dosage: 500 MG, QD

REACTIONS (5)
  - Hypersensitivity [Unknown]
  - Dermatitis bullous [Unknown]
  - Oral pain [Unknown]
  - Mouth ulceration [Unknown]
  - Oral mucosal eruption [Unknown]
